FAERS Safety Report 25713974 (Version 2)
Quarter: 2025Q4

REPORT INFORMATION
  Report Type: Report from Study
  Country: JP (occurrence: JP)
  Receive Date: 20250822
  Receipt Date: 20251001
  Transmission Date: 20260117
  Serious: Yes (Other)
  Sender: Haleon PLC
  Company Number: JP-HALEON-2258543

PATIENT
  Age: 69 Year
  Sex: Male
  Weight: 65.5 kg

DRUGS (1)
  1. ALLI [Suspect]
     Active Substance: ORLISTAT
     Indication: Product used for unknown indication
     Dosage: TIMING OF ADMINISTRATION: DURING OR WITHIN 1 HOUR AFTER A MEAL, ON GOING
     Route: 048
     Dates: start: 20240830

REACTIONS (1)
  - Compression fracture [Not Recovered/Not Resolved]
